FAERS Safety Report 16800266 (Version 1)
Quarter: 2019Q4

REPORT INFORMATION
  Report Type: Spontaneous
  Country: US (occurrence: US)
  Receive Date: 20190912
  Receipt Date: 20190912
  Transmission Date: 20200122
  Serious: No
  Sender: FDA-Public Use
  Company Number: None

PATIENT
  Age: 62 Year
  Sex: Female
  Weight: 60.75 kg

DRUGS (7)
  1. VIT B 12 [Concomitant]
     Active Substance: CYANOCOBALAMIN
  2. SILVER VITAMIN [Concomitant]
  3. LORAZEPAM. [Concomitant]
     Active Substance: LORAZEPAM
  4. AIMOVIG [Suspect]
     Active Substance: ERENUMAB-AOOE
     Indication: MIGRAINE PROPHYLAXIS
     Dosage: ?          QUANTITY:1 INJECTION(S);OTHER FREQUENCY:EVERY FOUR WEEKS;?
     Route: 030
     Dates: start: 20190726, end: 20190823
  5. ESTROGEN/PROGESTERONE [Concomitant]
     Active Substance: ESTROGENS\PROGESTERONE
  6. VIT D [Concomitant]
     Active Substance: VITAMIN D NOS
  7. OMEPRAZOLE. [Concomitant]
     Active Substance: OMEPRAZOLE

REACTIONS (1)
  - Nightmare [None]

NARRATIVE: CASE EVENT DATE: 20190912
